FAERS Safety Report 8344951-4 (Version None)
Quarter: 2012Q2

REPORT INFORMATION
  Report Type: 
  Country: None (occurrence: None)
  Receive Date: 20120508
  Receipt Date: 20120502
  Transmission Date: 20120825
  Serious: Yes (Other)
  Sender: FDA-Public Use
  Company Number: IT-MERCK-1205USA00362

PATIENT
  Age: 54 Year
  Sex: Female

DRUGS (5)
  1. REMICADE [Suspect]
     Indication: PSORIATIC ARTHROPATHY
     Route: 041
     Dates: start: 20091002, end: 20120412
  2. PANTOPRAZOLE SODIUM [Concomitant]
     Route: 065
  3. FOSAMAX PLUS D [Suspect]
     Route: 048
  4. ASPIRIN [Concomitant]
     Route: 065
  5. ZOCOR [Concomitant]
     Route: 048

REACTIONS (3)
  - DYSPNOEA [None]
  - LARYNGOSPASM [None]
  - HEADACHE [None]
